FAERS Safety Report 15075515 (Version 1)
Quarter: 2018Q2

REPORT INFORMATION
  Report Type: Spontaneous
  Country: US (occurrence: US)
  Receive Date: 20180627
  Receipt Date: 20180627
  Transmission Date: 20180711
  Serious: No
  Sender: FDA-Public Use
  Company Number: US-SAOL THERAPEUTICS-2018SAO00679

PATIENT
  Sex: Male

DRUGS (5)
  1. GABAPENTIN. [Concomitant]
     Active Substance: GABAPENTIN
  2. BACLOFEN. [Suspect]
     Active Substance: BACLOFEN
     Indication: MULTIPLE SCLEROSIS
  3. TRAZODONE [Concomitant]
     Active Substance: TRAZODONE HYDROCHLORIDE
  4. BACLOFEN. [Suspect]
     Active Substance: BACLOFEN
     Indication: MUSCLE SPASTICITY
     Route: 037
  5. LISINOPRIL. [Concomitant]
     Active Substance: LISINOPRIL

REACTIONS (3)
  - Cystitis [Unknown]
  - Urinary tract infection [Unknown]
  - Abdominal infection [Unknown]
